FAERS Safety Report 21399343 (Version 1)
Quarter: 2022Q4

REPORT INFORMATION
  Report Type: Spontaneous
  Country: MX (occurrence: MX)
  Receive Date: 20221001
  Receipt Date: 20221001
  Transmission Date: 20230113
  Serious: Yes (Death)
  Sender: FDA-Public Use
  Company Number: MX-NOVARTISPH-NVSC2022MX222230

PATIENT
  Age: 82 Year
  Sex: Male
  Weight: 80 kg

DRUGS (3)
  1. EXELON [Suspect]
     Active Substance: RIVASTIGMINE TARTRATE
     Indication: Dementia Alzheimer^s type
     Dosage: 1 DOSAGE FORM, QD (LOWER CONCENTRATION, EXTENDED RELEASE)
     Route: 062
     Dates: start: 2021
  2. EXELON [Suspect]
     Active Substance: RIVASTIGMINE TARTRATE
     Dosage: 1 DOSAGE FORM, QD (MEDIUM CONCENTRATION)
     Route: 062
     Dates: start: 2021
  3. EXELON [Suspect]
     Active Substance: RIVASTIGMINE TARTRATE
     Dosage: 1 DOSAGE FORM, QD (27 MG)
     Route: 062
     Dates: start: 2021

REACTIONS (1)
  - Myocardial infarction [Fatal]

NARRATIVE: CASE EVENT DATE: 20220101
